FAERS Safety Report 24656943 (Version 1)
Quarter: 2024Q4

REPORT INFORMATION
  Report Type: Spontaneous
  Country: KR (occurrence: KR)
  Receive Date: 20241125
  Receipt Date: 20241125
  Transmission Date: 20250115
  Serious: Yes (Other)
  Sender: COLLEGIUM PHARMACEUTICAL
  Company Number: KR-JNJFOC-20241114947

PATIENT
  Sex: Female

DRUGS (2)
  1. NUCYNTA [Suspect]
     Active Substance: TAPENTADOL HYDROCHLORIDE
     Indication: Brain stem glioma
     Dosage: 100 MILLIGRAM, 2/DAY
     Route: 065
     Dates: start: 20230303, end: 20230304
  2. FAMCICLOVIR [Concomitant]
     Active Substance: FAMCICLOVIR
     Indication: Brain stem glioma
     Dosage: 750 MILLIGRAM, 1/DAY
     Route: 065
     Dates: start: 20230303, end: 20230309

REACTIONS (3)
  - Hyperventilation [Recovered/Resolved]
  - Seizure [Recovered/Resolved]
  - Off label use [Unknown]

NARRATIVE: CASE EVENT DATE: 20230303
